APPROVED DRUG PRODUCT: METHYLTESTOSTERONE
Active Ingredient: METHYLTESTOSTERONE
Strength: 10MG
Dosage Form/Route: CAPSULE;ORAL
Application: A204851 | Product #001 | TE Code: AB
Applicant: IMPAX LABORATORIES INC
Approved: Sep 21, 2015 | RLD: No | RS: Yes | Type: RX